FAERS Safety Report 7239790-1 (Version None)
Quarter: 2011Q1

REPORT INFORMATION
  Report Type: 
  Country: None (occurrence: None)
  Receive Date: 20110122
  Receipt Date: 20101116
  Transmission Date: 20110831
  Serious: No
  Sender: FDA-Public Use
  Company Number: US-ALLERGAN-1014847US

PATIENT
  Age: 47 Year
  Sex: Female

DRUGS (1)
  1. LATISSE [Suspect]
     Indication: PRODUCT USED FOR UNKNOWN INDICATION
     Dosage: 1 GTT, QHS
     Route: 061
     Dates: start: 20100101, end: 20100101

REACTIONS (2)
  - EYELID IRRITATION [None]
  - SKIN DISCOLOURATION [None]
